FAERS Safety Report 23707356 (Version 1)
Quarter: 2024Q2

REPORT INFORMATION
  Report Type: Spontaneous
  Country: JP (occurrence: JP)
  Receive Date: 20240404
  Receipt Date: 20240404
  Transmission Date: 20240716
  Serious: Yes (Hospitalization, Other)
  Sender: FDA-Public Use
  Company Number: JP-OTSUKA-2024_008468

PATIENT
  Age: 7 Decade
  Sex: Female

DRUGS (3)
  1. ABILIFY [Suspect]
     Active Substance: ARIPIPRAZOLE
     Indication: Bipolar disorder
     Dosage: 12 MG/DAY
     Route: 048
     Dates: start: 202403, end: 202403
  2. ABILIFY [Suspect]
     Active Substance: ARIPIPRAZOLE
     Dosage: 24 MG/DAY
     Route: 048
     Dates: start: 202403, end: 202403
  3. DANTROLENE SODIUM [Suspect]
     Active Substance: DANTROLENE SODIUM
     Indication: Neuroleptic malignant syndrome
     Dosage: UNK
     Route: 042
     Dates: start: 202403

REACTIONS (3)
  - Drug eruption [Recovered/Resolved]
  - Neuroleptic malignant syndrome [Recovered/Resolved]
  - Akathisia [Recovered/Resolved]

NARRATIVE: CASE EVENT DATE: 20240301
